FAERS Safety Report 7631482-X (Version None)
Quarter: 2011Q3

REPORT INFORMATION
  Report Type: 
  Country: None (occurrence: None)
  Receive Date: 20110725
  Receipt Date: 20110713
  Transmission Date: 20111222
  Serious: Yes (Hospitalization, Other)
  Sender: FDA-Public Use
  Company Number: AU-CELGENEUS-008-50794-11071342

PATIENT
  Sex: Male
  Weight: 70.65 kg

DRUGS (12)
  1. VIDAZA [Suspect]
     Route: 058
     Dates: start: 20110614, end: 20110622
  2. NEUROFEN [Concomitant]
     Route: 065
     Dates: start: 20110705
  3. VIDAZA [Suspect]
     Route: 058
     Dates: start: 20110711, end: 20110712
  4. CARTIA XT [Concomitant]
     Route: 065
     Dates: start: 20080101
  5. THYROXIN [Concomitant]
     Indication: HYPOTHYROIDISM
     Route: 065
     Dates: start: 20050101
  6. ZOFRAN [Concomitant]
     Indication: NAUSEA
     Route: 065
     Dates: start: 20110614
  7. MAXOLON [Concomitant]
     Indication: NAUSEA
     Route: 065
     Dates: start: 20110623
  8. ALLOPURINOL [Concomitant]
     Route: 065
     Dates: start: 20080101
  9. ZOFRAN [Concomitant]
     Indication: VOMITING
  10. ACETAMINOPHEN [Concomitant]
     Indication: PAIN
     Route: 065
     Dates: start: 20110604, end: 20110604
  11. PANTOPRAZOLE [Concomitant]
     Indication: GASTRIC DISORDER
     Route: 065
     Dates: start: 20080101
  12. MINOCYCLINE HCL [Concomitant]
     Indication: ROSACEA
     Route: 065
     Dates: start: 20100101

REACTIONS (3)
  - HYPERKALAEMIA [None]
  - THROMBOCYTOSIS [None]
  - PYREXIA [None]
